FAERS Safety Report 6833623-0 (Version None)
Quarter: 2010Q3

REPORT INFORMATION
  Report Type: 
  Country: None (occurrence: None)
  Receive Date: 20100712
  Receipt Date: 20070328
  Transmission Date: 20110219
  Serious: No
  Sender: FDA-Public Use
  Company Number: US-PFIZER INC-2007026471

PATIENT
  Sex: Female
  Weight: 81.65 kg

DRUGS (7)
  1. CHANTIX [Suspect]
     Indication: SMOKING CESSATION THERAPY
     Dates: start: 20070315, end: 20070328
  2. LORAZEPAM [Suspect]
     Indication: ANXIETY
  3. LEXAPRO [Concomitant]
  4. ALBUTEROL [Concomitant]
     Indication: ASTHMA
  5. PREMARIN [Concomitant]
  6. TRICOR [Concomitant]
  7. HYDROCHLOROTHIAZIDE [Concomitant]

REACTIONS (5)
  - ANXIETY [None]
  - FEELING JITTERY [None]
  - HYPERHIDROSIS [None]
  - IRRITABILITY [None]
  - PANIC REACTION [None]
